FAERS Safety Report 5274399-0 (Version None)
Quarter: 2007Q1

REPORT INFORMATION
  Report Type: 
  Country: None (occurrence: None)
  Receive Date: 20070323
  Receipt Date: 20070312
  Transmission Date: 20070707
  Serious: Yes (Hospitalization)
  Sender: FDA-Public Use
  Company Number: US-PFIZER INC-2007008173

PATIENT
  Sex: Female
  Weight: 65.8 kg

DRUGS (1)
  1. CELEBREX [Suspect]
     Indication: ARTHRALGIA
     Dates: start: 20010530, end: 20010614

REACTIONS (1)
  - OCULAR VASCULAR DISORDER [None]
